FAERS Safety Report 15555153 (Version 1)
Quarter: 2018Q4

REPORT INFORMATION
  Report Type: Spontaneous
  Country: US (occurrence: US)
  Receive Date: 20181023
  Receipt Date: 20181023
  Transmission Date: 20190205
  Serious: Yes (Hospitalization)
  Sender: FDA-Public Use
  Company Number: None

PATIENT
  Age: 58 Year
  Weight: 113.4 kg

DRUGS (12)
  1. THORAZINE [Concomitant]
     Active Substance: CHLORPROMAZINE
  2. COLACE [Concomitant]
     Active Substance: DOCUSATE SODIUM
  3. MORPHINE [Suspect]
     Active Substance: MORPHINE
     Indication: PAIN
     Route: 048
  4. OXYCODONE [Suspect]
     Active Substance: OXYCODONE
     Indication: PAIN
     Route: 048
  5. ECOTRIN [Concomitant]
     Active Substance: ASPIRIN
  6. ZOFRAN [Concomitant]
     Active Substance: ONDANSETRON HYDROCHLORIDE
  7. FLEXERIL [Concomitant]
     Active Substance: CYCLOBENZAPRINE HYDROCHLORIDE
  8. LIDODER [Concomitant]
  9. APAP [Concomitant]
     Active Substance: ACETAMINOPHEN
  10. HYGROTON [Concomitant]
     Active Substance: CHLORTHALIDONE
  11. ZESTRIL [Concomitant]
     Active Substance: LISINOPRIL
  12. COLACE [Concomitant]
     Active Substance: DOCUSATE SODIUM

REACTIONS (6)
  - Confusional state [None]
  - Electrolyte imbalance [None]
  - Hypercalcaemia [None]
  - Acute kidney injury [None]
  - Endocrine disorder [None]
  - Myeloma cast nephropathy [None]

NARRATIVE: CASE EVENT DATE: 20181002
